FAERS Safety Report 4770247-3 (Version None)
Quarter: 2005Q3

REPORT INFORMATION
  Report Type: 
  Country: None (occurrence: None)
  Receive Date: 20050915
  Receipt Date: 20050325
  Transmission Date: 20060218
  Serious: No
  Sender: FDA-Public Use
  Company Number: US-GLAXOSMITHKLINE-A0551439A

PATIENT
  Age: 56 Year

DRUGS (1)
  1. ABREVA [Suspect]
     Dates: start: 20050320, end: 20050324

REACTIONS (3)
  - APPLICATION SITE ERYTHEMA [None]
  - APPLICATION SITE VESICLES [None]
  - HERPES SIMPLEX [None]
